FAERS Safety Report 9623995 (Version 1)
Quarter: 2013Q4

REPORT INFORMATION
  Report Type: Spontaneous
  Country: US (occurrence: US)
  Receive Date: 20131015
  Receipt Date: 20131015
  Transmission Date: 20140711
  Serious: No
  Sender: FDA-Public Use
  Company Number: US-BAUSCH-BL-2013-004369

PATIENT
  Age: 76 Year
  Sex: Male

DRUGS (1)
  1. LOTEMAX (LOTEPREDNOL ETABONATE OPHTHALMIC GEL 0.5%) [Suspect]
     Indication: CORNEAL EROSION
     Dosage: 1 DROP; THREE TIMES A DAY; RIGHT EYE
     Route: 047
     Dates: start: 20130702, end: 201307

REACTIONS (2)
  - Off label use [Recovered/Resolved]
  - Urticaria [Recovered/Resolved]
